FAERS Safety Report 8283716 (Version 3)
Quarter: 2013Q4

REPORT INFORMATION
  Report Type: Spontaneous
  Country: GB (occurrence: GB)
  Receive Date: 20111212
  Receipt Date: 20131113
  Transmission Date: 20140711
  Serious: Yes (Hospitalization)
  Sender: FDA-Public Use
  Company Number: GB-TEVA-312153ISR

PATIENT
  Age: 75 Year
  Sex: Female
  Weight: 61 kg

DRUGS (11)
  1. CLARITHROMYCIN [Suspect]
     Indication: MALAISE
     Route: 048
  2. CICLOSPORIN [Suspect]
     Indication: CHRONIC LYMPHOCYTIC LEUKAEMIA
     Route: 048
  3. AMITRIPTYLINE [Concomitant]
     Route: 048
  4. RAMIPRIL [Concomitant]
     Dosage: STOPPED
  5. DEXAMETHASONE [Concomitant]
     Route: 048
  6. RANITIDINE [Concomitant]
  7. ATENOLOL [Concomitant]
     Route: 048
  8. BENDROFLUMETHIAZIDE [Concomitant]
     Dosage: STOPPED
  9. ALENDRONIC ACID [Concomitant]
  10. LEVOTHYROXINE [Concomitant]
     Route: 048
  11. ISOSORBIDE MONONITRATE [Concomitant]
     Route: 048

REACTIONS (1)
  - Renal failure acute [Recovering/Resolving]
